FAERS Safety Report 16236056 (Version 4)
Quarter: 2020Q4

REPORT INFORMATION
  Report Type: Report from Study
  Country: JP (occurrence: JP)
  Receive Date: 20190425
  Receipt Date: 20201204
  Transmission Date: 20210113
  Serious: Yes (Disabling, Other)
  Sender: FDA-Public Use
  Company Number: JP-ALEXION PHARMACEUTICALS INC.-A201906095

PATIENT
  Age: 16 Day
  Sex: Male
  Weight: 2.5 kg

DRUGS (22)
  1. FUROSEMIDE. [Concomitant]
     Active Substance: FUROSEMIDE
     Indication: HYPOPHOSPHATASIA
     Dosage: 1-2 MG/KG, DAILY
     Route: 042
     Dates: start: 20190314, end: 20190820
  2. SODIUM PHOSPHATE [Concomitant]
     Active Substance: SODIUM PHOSPHATE
     Indication: HYPOPHOSPHATASIA
     Dosage: UNK
     Route: 041
     Dates: start: 20190321, end: 20200107
  3. VITAMIN B6 [Concomitant]
     Active Substance: PYRIDOXINE HYDROCHLORIDE
     Indication: HYPOPHOSPHATASIA
     Dosage: 10-20MG/KG/DAY, BID
     Route: 048
     Dates: start: 20190406
  4. SAMSCA [Concomitant]
     Active Substance: TOLVAPTAN
     Indication: CRANIOSYNOSTOSIS
     Dosage: 0.3 MG/KG, TID
     Route: 048
     Dates: start: 20190327, end: 20190520
  5. PYRIDOXAL [Concomitant]
     Active Substance: PYRIDOXAL
     Indication: PRODUCT USED FOR UNKNOWN INDICATION
     Dosage: 5 MG/KG, BID
     Route: 065
     Dates: start: 20190313
  6. HYDROCORTISONE. [Concomitant]
     Active Substance: HYDROCORTISONE
     Indication: HYPOPHOSPHATASIA
     Dosage: UNK
     Route: 042
     Dates: start: 20190313, end: 20190711
  7. FENTANYL. [Concomitant]
     Active Substance: FENTANYL
     Indication: HYPOPHOSPHATASIA
     Dosage: 1.2 ?G/KG, CONTINUOUS INTRAVENOUS INFUSION
     Route: 041
     Dates: start: 20190313, end: 20190324
  8. POTASSIUM CANRENOATE [Concomitant]
     Active Substance: CANRENOATE POTASSIUM
     Indication: HYPOPHOSPHATASIA
     Dosage: 1-2 MG/KG/TIME, DAILY
     Route: 042
     Dates: start: 20190314, end: 20190820
  9. PHOSRIBBON [Concomitant]
     Indication: PRODUCT USED FOR UNKNOWN INDICATION
     Dosage: 10-25 MG, DAILY
     Route: 065
     Dates: start: 20190313
  10. ALDACTONE [Concomitant]
     Active Substance: SPIRONOLACTONE
     Indication: CRANIOSYNOSTOSIS
     Dosage: 2 MG/KG, DAILY
     Route: 065
     Dates: start: 20190325
  11. DOPAMIN                            /00000101/ [Concomitant]
     Active Substance: METHYLDOPA
     Indication: HYPOPHOSPHATASIA
     Dosage: 1-5G, CONTINUOUS INTRAVENOUS INFUSION
     Route: 041
     Dates: start: 20190313, end: 20190321
  12. FUROSEMIDE. [Concomitant]
     Active Substance: FUROSEMIDE
     Indication: CRANIOSYNOSTOSIS
     Dosage: 2 MG/KG, BID
     Route: 048
     Dates: start: 20190325
  13. MIDAZOLAM. [Concomitant]
     Active Substance: MIDAZOLAM
     Indication: HYPOPHOSPHATASIA
     Dosage: 1.5 MG/KG, CONTINUOUS INTRAVENOUS INFUSION
     Route: 041
     Dates: start: 20190313, end: 20190918
  14. VITAMIN B COMPLEX [Concomitant]
     Active Substance: CYANOCOBALAMIN\DEXPANTHENOL\NIACINAMIDE\PYRIDOXINE HYDROCHLORIDE\RIBOFLAVIN 5^-PHOSPHATE SODIUM\THIAMINE HYDROCHLORIDE\VITAMIN B COMPLEX
     Indication: HYPOPHOSPHATASIA
     Dosage: 0.3 DF, BID
     Route: 042
     Dates: start: 20190313, end: 20190405
  15. ADCIRCA [Concomitant]
     Active Substance: TADALAFIL
     Indication: HYPOCALCAEMIA
     Dosage: 0.5 MG, QD
     Route: 048
     Dates: start: 20190803
  16. STRENSIQ [Suspect]
     Active Substance: ASFOTASE ALFA
     Indication: HYPOPHOSPHATASIA
     Dosage: 2 MG/KG, TIW
     Route: 058
     Dates: start: 20190320
  17. CALCICOL [Concomitant]
     Active Substance: CALCIUM GLUCONATE
     Indication: PRODUCT USED FOR UNKNOWN INDICATION
     Dosage: 2-10 ML/KG, DAILY
     Route: 065
     Dates: start: 20190313
  18. ALFAROL [Concomitant]
     Active Substance: ALFACALCIDOL
     Indication: PRODUCT USED FOR UNKNOWN INDICATION
     Dosage: 0.2-0.6 ML/KG, DAILY
     Route: 065
     Dates: start: 20190313
  19. DOBUTAMINE [Concomitant]
     Active Substance: DOBUTAMINE HYDROCHLORIDE
     Indication: HYPOPHOSPHATASIA
     Dosage: 1-5G, CONTINUOUS INTRAVENOUS INFUSION
     Route: 041
     Dates: start: 20190313, end: 20190321
  20. CALCIUM COMPOUNDS [Concomitant]
     Indication: HYPOPHOSPHATASIA
     Dosage: UNK
     Route: 041
     Dates: start: 20190315, end: 20191218
  21. BOSENTAN. [Concomitant]
     Active Substance: BOSENTAN
     Indication: HYPOCALCAEMIA
     Dosage: 1-4 MG/KG, BID
     Route: 048
     Dates: start: 20190701
  22. VITAMIN D                          /00107901/ [Concomitant]
     Active Substance: ERGOCALCIFEROL
     Indication: HYPOPHOSPHATASIA
     Dosage: UNK, QD
     Route: 048
     Dates: start: 20190318, end: 20190920

REACTIONS (4)
  - Pulmonary fibrosis [Recovering/Resolving]
  - Motor developmental delay [Unknown]
  - Hypercalciuria [Unknown]
  - Pneumonia [Unknown]

NARRATIVE: CASE EVENT DATE: 20190329
